FAERS Safety Report 21995990 (Version 2)
Quarter: 2023Q2

REPORT INFORMATION
  Report Type: Report from Study
  Country: US (occurrence: US)
  Receive Date: 20230215
  Receipt Date: 20230411
  Transmission Date: 20230721
  Serious: Yes (Other)
  Sender: FDA-Public Use
  Company Number: US-002147023-NVSC2023US031352

PATIENT
  Age: 67 Year
  Sex: Female

DRUGS (1)
  1. ENTRESTO [Suspect]
     Active Substance: SACUBITRIL\VALSARTAN
     Indication: Product used for unknown indication
     Dosage: UNK
     Route: 065
     Dates: start: 202209

REACTIONS (5)
  - Diabetes mellitus [Recovering/Resolving]
  - Cataract [Unknown]
  - COVID-19 [Recovering/Resolving]
  - Atrophy [Unknown]
  - Eye infection [Unknown]

NARRATIVE: CASE EVENT DATE: 20221201
